FAERS Safety Report 22242626 (Version 3)
Quarter: 2023Q4

REPORT INFORMATION
  Report Type: Report from Study
  Country: JP (occurrence: JP)
  Receive Date: 20230424
  Receipt Date: 20231127
  Transmission Date: 20240109
  Serious: Yes (Other)
  Sender: FDA-Public Use
  Company Number: JP-JNJFOC-20230451694

PATIENT
  Age: 68 Year

DRUGS (6)
  1. DARATUMUMAB [Suspect]
     Active Substance: DARATUMUMAB
     Indication: Primary amyloidosis
     Dosage: DOSE UNKNOWN, 5 COURSES
     Route: 058
     Dates: start: 202212
  2. VELCADE [Suspect]
     Active Substance: BORTEZOMIB
     Indication: Primary amyloidosis
     Dosage: 4 COURSES
     Route: 065
     Dates: start: 202212
  3. VELCADE [Suspect]
     Active Substance: BORTEZOMIB
     Dosage: 2 COURSES
     Route: 065
  4. CYCLOPHOSPHAMIDE [Suspect]
     Active Substance: CYCLOPHOSPHAMIDE
     Indication: Primary amyloidosis
     Dosage: DOSE UNKNOWN
     Route: 065
     Dates: start: 202212
  5. CYCLOPHOSPHAMIDE [Suspect]
     Active Substance: CYCLOPHOSPHAMIDE
     Indication: Primary amyloidosis
     Route: 065
  6. DEXAMETHASONE [Suspect]
     Active Substance: DEXAMETHASONE
     Indication: Primary amyloidosis
     Dosage: DOSE UNKNOWN, 5 COURSES
     Route: 065
     Dates: start: 202212

REACTIONS (1)
  - Neuropathy peripheral [Unknown]
